FAERS Safety Report 4724271-7 (Version None)
Quarter: 2005Q3

REPORT INFORMATION
  Report Type: 
  Country: None (occurrence: None)
  Receive Date: 20050722
  Receipt Date: 20050707
  Transmission Date: 20060218
  Serious: Yes (Hospitalization, Other)
  Sender: FDA-Public Use
  Company Number: 200505884

PATIENT
  Age: 50 Year
  Sex: Female

DRUGS (6)
  1. BOTOX [Suspect]
     Indication: SKIN WRINKLING
  2. ESCITALOPRAM OXALATE [Concomitant]
  3. ALPRAZOLAM [Concomitant]
  4. RABEPRAZOLE SODIUM [Concomitant]
  5. LORMETAZEPAM [Concomitant]
  6. ATORVASTATIN CALCIUM [Concomitant]

REACTIONS (3)
  - BLOOD PRESSURE INCREASED [None]
  - HYPERSENSITIVITY [None]
  - THERAPEUTIC RESPONSE DECREASED [None]
